FAERS Safety Report 4340135-5 (Version None)
Quarter: 2004Q2

REPORT INFORMATION
  Report Type: 
  Country: None (occurrence: None)
  Receive Date: 20040416
  Receipt Date: 20040416
  Transmission Date: 20050107
  Serious: Yes (Life-Threatening)
  Sender: FDA-Public Use
  Company Number: None

PATIENT
  Sex: Male
  Weight: 99.7913 kg

DRUGS (2)
  1. ZOLOFT [Suspect]
     Indication: ANXIETY
     Dosage: 100 MG 1X DAILY ORAL
     Route: 048
     Dates: start: 20030501, end: 20040414
  2. ZOLOFT [Suspect]
     Indication: DEPRESSION
     Dosage: 100 MG 1X DAILY ORAL
     Route: 048
     Dates: start: 20030501, end: 20040414

REACTIONS (9)
  - CONFUSIONAL STATE [None]
  - DEPRESSED MOOD [None]
  - DEPRESSION [None]
  - EMOTIONAL DISORDER [None]
  - FEAR [None]
  - HYPERHIDROSIS [None]
  - PYREXIA [None]
  - SUICIDAL IDEATION [None]
  - WEIGHT INCREASED [None]
